FAERS Safety Report 9327751 (Version 1)
Quarter: 2013Q2

REPORT INFORMATION
  Report Type: Spontaneous
  Country: US (occurrence: US)
  Receive Date: 20130604
  Receipt Date: 20130604
  Transmission Date: 20140414
  Serious: No
  Sender: FDA-Public Use
  Company Number: US-AMGEN-USASP2013030976

PATIENT
  Age: 60 Year
  Sex: Female
  Weight: 56.69 kg

DRUGS (1)
  1. ENBREL [Suspect]
     Indication: ANKYLOSING SPONDYLITIS
     Dosage: 50 MG, QWK
     Route: 058
     Dates: start: 20120116

REACTIONS (6)
  - Sneezing [Recovered/Resolved]
  - Eyelid oedema [Recovered/Resolved]
  - Erythema of eyelid [Recovered/Resolved]
  - Dacryostenosis acquired [Recovered/Resolved]
  - Eyelid cyst [Recovered/Resolved]
  - Eyelid infection [Recovered/Resolved]
